FAERS Safety Report 6990150-8 (Version None)
Quarter: 2010Q3

REPORT INFORMATION
  Report Type: 
  Country: None (occurrence: None)
  Receive Date: 20100916
  Receipt Date: 20100503
  Transmission Date: 20110219
  Serious: Yes (Other)
  Sender: FDA-Public Use
  Company Number: US-PFIZER INC-2010056304

PATIENT
  Sex: Female
  Weight: 86.168 kg

DRUGS (5)
  1. LYRICA [Suspect]
     Indication: PARAESTHESIA
     Dosage: 75 MG, 2X/DAY
     Route: 048
     Dates: start: 20100301, end: 20100503
  2. LYRICA [Suspect]
     Indication: HYPOAESTHESIA
  3. QUINAPRIL [Concomitant]
     Indication: HYPERTENSION
     Dosage: 20 MG, DAILY
  4. METFORMIN [Concomitant]
     Indication: DIABETES MELLITUS
     Dosage: 40 MG, 2X/DAY
  5. FUROSEMIDE [Concomitant]
     Dosage: 40 MG, DAILY

REACTIONS (6)
  - DYSPHAGIA [None]
  - LOCAL SWELLING [None]
  - OEDEMA PERIPHERAL [None]
  - PARAESTHESIA [None]
  - VISUAL ACUITY REDUCED [None]
  - WEIGHT INCREASED [None]
